FAERS Safety Report 6295075-1 (Version None)
Quarter: 2009Q3

REPORT INFORMATION
  Report Type: 
  Country: None (occurrence: None)
  Receive Date: 20090730
  Receipt Date: 20090722
  Transmission Date: 20100115
  Serious: Yes (Hospitalization)
  Sender: FDA-Public Use
  Company Number: 2009-201155-NL

PATIENT
  Sex: Female

DRUGS (4)
  1. FOLLITROPIN BETA [Suspect]
     Dosage: DF; NI
  2. GANIRELIX ACETATE INJECTION [Suspect]
     Dosage: DF; NI
  3. CHORIONIC GONADOTROPIN [Suspect]
     Dosage: DF; NI
  4. PROGESTERONE [Suspect]
     Dosage: 600 MG; NI

REACTIONS (4)
  - DRUG EXPOSURE DURING PREGNANCY [None]
  - HETEROTOPIC PREGNANCY [None]
  - ILL-DEFINED DISORDER [None]
  - OVARIAN HYPERSTIMULATION SYNDROME [None]
